FAERS Safety Report 14230060 (Version 1)
Quarter: 2017Q4

REPORT INFORMATION
  Report Type: Not Available
  Country: US (occurrence: US)
  Receive Date: 20171128
  Receipt Date: 20171128
  Transmission Date: 20180321
  Serious: No
  Sender: FDA-Public Use
  Company Number: US-NEUROCRINE BIOSCIENCES INC.-2017NBI01289

PATIENT
  Age: 59 Year
  Sex: Female

DRUGS (4)
  1. INGREZZA [Suspect]
     Active Substance: VALBENAZINE
     Route: 048
     Dates: start: 20171007, end: 20171018
  2. DICLOFENAC [Suspect]
     Active Substance: DICLOFENAC
     Indication: LIMB INJURY
  3. INGREZZA [Suspect]
     Active Substance: VALBENAZINE
     Indication: PRODUCT USED FOR UNKNOWN INDICATION
     Route: 048
     Dates: start: 20170930, end: 20171006
  4. FLEXERIL [Suspect]
     Active Substance: CYCLOBENZAPRINE HYDROCHLORIDE
     Indication: LIMB INJURY

REACTIONS (4)
  - Pollakiuria [Recovered/Resolved]
  - Nausea [Recovered/Resolved]
  - Limb injury [Unknown]
  - Urticaria [Unknown]

NARRATIVE: CASE EVENT DATE: 201710
